FAERS Safety Report 8007933-8 (Version None)
Quarter: 2011Q4

REPORT INFORMATION
  Report Type: 
  Country: None (occurrence: None)
  Receive Date: 20111227
  Receipt Date: 20111219
  Transmission Date: 20120403
  Serious: Yes (Hospitalization)
  Sender: FDA-Public Use
  Company Number: FR-PFIZER INC-2011307554

PATIENT
  Age: 79 Year
  Sex: Female

DRUGS (5)
  1. LASIX [Suspect]
     Indication: HYPERTENSION
     Dosage: UNK
     Route: 048
     Dates: end: 20111107
  2. RAMIPRIL [Suspect]
     Indication: HYPERTENSION
     Dosage: UNK
     Route: 048
     Dates: end: 20111107
  3. MORPHINE SULFATE [Concomitant]
     Indication: BONE PAIN
  4. MORPHINE SULFATE [Concomitant]
     Indication: BONE PAIN
  5. ALDACTONE [Suspect]
     Indication: HYPERTENSION
     Dosage: 25 MG, UNK
     Route: 048
     Dates: end: 20111107

REACTIONS (4)
  - FALL [None]
  - HYPOTENSION [None]
  - RENAL FAILURE ACUTE [None]
  - ASTHENIA [None]
